FAERS Safety Report 25338027 (Version 5)
Quarter: 2025Q4

REPORT INFORMATION
  Report Type: Report from Study
  Country: US (occurrence: US)
  Receive Date: 20250520
  Receipt Date: 20251118
  Transmission Date: 20260118
  Serious: Yes (Other)
  Sender: SPRINGWORKS THERAPEUTIC
  Company Number: US-SPRINGWORKS THERAPEUTICS-SW-002207

PATIENT
  Age: 15 Year
  Sex: Male

DRUGS (4)
  1. NIROGACESTAT [Suspect]
     Active Substance: NIROGACESTAT
     Indication: Desmoid tumour
     Dosage: 150 MILLIGRAM, BID
     Dates: start: 20241206
  2. NIROGACESTAT [Suspect]
     Active Substance: NIROGACESTAT
     Dosage: 100 MILLIGRAM, BID FOR 28 DAYS
  3. NIROGACESTAT [Suspect]
     Active Substance: NIROGACESTAT
     Dosage: 50 MILLIGRAM, BID
     Dates: end: 20251022
  4. SCOPOLAMINE [Suspect]
     Active Substance: SCOPOLAMINE
     Indication: Nausea
     Dosage: PATCH

REACTIONS (22)
  - Scrotal abscess [Recovered/Resolved with Sequelae]
  - Spermatocele [Recovered/Resolved]
  - Abdominal pain upper [Recovered/Resolved]
  - Oropharyngeal erythema [Recovered/Resolved]
  - Malaise [Recovered/Resolved]
  - Papule [Recovered/Resolved]
  - Oropharyngeal pain [Recovered/Resolved]
  - Neoplasm skin [Not Recovered/Not Resolved]
  - Norovirus infection [Recovered/Resolved]
  - Scrotal mass [Recovered/Resolved]
  - Mydriasis [Recovered/Resolved]
  - Vomiting [Recovered/Resolved]
  - Cyst [Not Recovered/Not Resolved]
  - Gastroenteritis viral [Recovered/Resolved]
  - Headache [Not Recovered/Not Resolved]
  - Fatigue [Not Recovered/Not Resolved]
  - Nausea [Not Recovered/Not Resolved]
  - Diarrhoea [Recovered/Resolved]
  - Off label use [Unknown]
  - Product dose omission issue [Unknown]
  - Product dose omission in error [Unknown]
  - Prescribed underdose [Unknown]

NARRATIVE: CASE EVENT DATE: 20241210
